FAERS Safety Report 9541907 (Version 1)
Quarter: 2013Q2

REPORT INFORMATION
  Report Type: Spontaneous
  Country: US (occurrence: None)
  Receive Date: 20130524
  Receipt Date: 20130524
  Transmission Date: 20140414
  Serious: No
  Sender: FDA-Public Use
  Company Number: PHEH2013US003526

PATIENT
  Age: 39 Year
  Sex: Female

DRUGS (3)
  1. GILENYA (FINGOLIMOD) CAPSULE, 0.5MG [Suspect]
     Indication: MULTIPLE SCLEROSIS
     Route: 048
     Dates: start: 20130208
  2. XANAX (ALPRAZOLAM) [Concomitant]
  3. AMBIEN (ZOLPIDEM TARTRATE) [Concomitant]

REACTIONS (2)
  - Insomnia [None]
  - Heart rate decreased [None]
